FAERS Safety Report 10052622 (Version 1)
Quarter: 2014Q1

REPORT INFORMATION
  Report Type: Spontaneous
  Country: US (occurrence: None)
  Receive Date: 20140331
  Receipt Date: 20140331
  Transmission Date: 20141002
  Serious: Yes (Hospitalization)
  Sender: FDA-Public Use
  Company Number: UTC-045267

PATIENT
  Age: 59 Year
  Sex: Male
  Weight: 111 kg

DRUGS (11)
  1. TYVASO [Suspect]
     Indication: PULMONARY HYPERTENSION
     Dosage: 18 TO 54 MCG (4 IN 1 D), INHALATION
     Route: 055
     Dates: start: 20140108
  2. EFFIENT (PRASUGREL) [Concomitant]
  3. SINGULAIR (MONTELUKAST) [Concomitant]
  4. METHADONE METHADONE) [Concomitant]
  5. XANAX XR (ALPRAZOLAM) [Concomitant]
  6. OMEPRAZOLE (OMEPRAZOLE) [Concomitant]
  7. FLUOXETINE (FLUOXETINE) [Concomitant]
  8. OXYCODONE (OXYCODONE) [Concomitant]
  9. ASPIRIN (ACETYLSALICYLIC ACID) [Concomitant]
  10. ATORVASTATIN (ATORVASTATIN) [Concomitant]
  11. BYSTOLIC (NEBIVOLOL HYDROCHLORIDE) [Concomitant]

REACTIONS (5)
  - Pneumonia [None]
  - Venous oxygen saturation decreased [None]
  - Encephalopathy [None]
  - Diarrhoea [None]
  - Flushing [None]
